FAERS Safety Report 20563013 (Version 1)
Quarter: 2022Q1

REPORT INFORMATION
  Report Type: Report from Study
  Country: US (occurrence: US)
  Receive Date: 20220307
  Receipt Date: 20220307
  Transmission Date: 20220423
  Serious: Yes (Hospitalization, Disabling, Other)
  Sender: FDA-Public Use
  Company Number: US-ABBVIE-22K-163-4300157-00

PATIENT
  Age: 64 Year
  Sex: Male

DRUGS (1)
  1. IMBRUVICA [Suspect]
     Active Substance: IBRUTINIB
     Indication: Chronic lymphocytic leukaemia
     Route: 048
     Dates: start: 201702

REACTIONS (9)
  - Spinal fusion surgery [Unknown]
  - Blindness unilateral [Unknown]
  - Eyelid ptosis [Unknown]
  - Back disorder [Unknown]
  - Fall [Unknown]
  - Pain [Unknown]
  - Onychoclasis [Unknown]
  - Skin laceration [Unknown]
  - White blood cell count abnormal [Unknown]

NARRATIVE: CASE EVENT DATE: 20220101
